FAERS Safety Report 19641820 (Version 1)
Quarter: 2021Q3

REPORT INFORMATION
  Report Type: Spontaneous
  Country: US (occurrence: US)
  Receive Date: 20210731
  Receipt Date: 20210731
  Transmission Date: 20211014
  Serious: Yes (Other)
  Sender: FDA-Public Use
  Company Number: US-STRIDES ARCOLAB LIMITED-2020SP009339

PATIENT
  Age: 60 Year
  Sex: Male

DRUGS (18)
  1. ROPINIROLE. [Suspect]
     Active Substance: ROPINIROLE
     Indication: PARKINSON^S DISEASE
     Dosage: UNK
     Route: 065
  2. ENTACAPONE. [Suspect]
     Active Substance: ENTACAPONE
     Dosage: UNK, FOUR TIMES A DAILY
     Route: 065
  3. AMANTADINE HYDROCHLORIDE. [Suspect]
     Active Substance: AMANTADINE HYDROCHLORIDE
     Indication: PARKINSON^S DISEASE
     Dosage: UNK
     Route: 065
  4. ROPINIROLE. [Suspect]
     Active Substance: ROPINIROLE
     Dosage: UNK, BID
     Route: 065
  5. SELEGILINE [Suspect]
     Active Substance: SELEGILINE
     Indication: PARKINSON^S DISEASE
     Dosage: UNK
     Route: 065
  6. SELEGILINE [Suspect]
     Active Substance: SELEGILINE
     Dosage: UNK, BID
     Route: 065
  7. ENTACAPONE. [Suspect]
     Active Substance: ENTACAPONE
     Indication: PARKINSON^S DISEASE
     Dosage: UNK
     Route: 065
  8. APOMORPHINE [Suspect]
     Active Substance: APOMORPHINE
     Indication: AKINESIA
     Dosage: UNK
     Route: 058
  9. CARBIDOPA AND LEVODOPA [Suspect]
     Active Substance: CARBIDOPA\LEVODOPA
     Dosage: DOSE REDUCED
     Route: 065
  10. AMANTADINE HYDROCHLORIDE. [Suspect]
     Active Substance: AMANTADINE HYDROCHLORIDE
     Dosage: UNK, QD
     Route: 065
  11. ROPINIROLE. [Suspect]
     Active Substance: ROPINIROLE
     Dosage: DOSE REDUCED
     Route: 065
  12. CARBIDOPA AND LEVODOPA [Suspect]
     Active Substance: CARBIDOPA\LEVODOPA
     Indication: PARKINSON^S DISEASE
     Dosage: UNK
     Route: 065
  13. AMANTADINE HYDROCHLORIDE. [Suspect]
     Active Substance: AMANTADINE HYDROCHLORIDE
     Dosage: DOSE REDUCED
     Route: 065
  14. SELEGILINE [Suspect]
     Active Substance: SELEGILINE
     Dosage: DOSE REDUCED
     Route: 065
  15. ENTACAPONE. [Suspect]
     Active Substance: ENTACAPONE
     Dosage: DOSE REDUCED
     Route: 065
  16. APOMORPHINE [Suspect]
     Active Substance: APOMORPHINE
     Indication: ON AND OFF PHENOMENON
  17. CARBIDOPA AND LEVODOPA [Suspect]
     Active Substance: CARBIDOPA\LEVODOPA
     Dosage: UNK, FIVE TIMES A DAY (DOSES EVERY 3.5 HOURS)
     Route: 048
  18. SALBUTAMOL [Concomitant]
     Active Substance: ALBUTEROL
     Indication: ASTHMA
     Dosage: UNK
     Route: 065

REACTIONS (2)
  - Hallucination, visual [Unknown]
  - Drug ineffective [Unknown]
